FAERS Safety Report 9219379 (Version 1)
Quarter: 2013Q2

REPORT INFORMATION
  Report Type: Spontaneous
  Country: US (occurrence: None)
  Receive Date: 20130405
  Receipt Date: 20130405
  Transmission Date: 20140414
  Serious: Yes (Other)
  Sender: FDA-Public Use
  Company Number: MC201300158

PATIENT
  Age: 17 Year
  Sex: Male

DRUGS (1)
  1. ANGIOMAX [Suspect]
     Indication: ANTICOAGULANT THERAPY
     Dosage: INFUSION, INTRAVENOUS

REACTIONS (3)
  - Thrombosis in device [None]
  - Off label use [None]
  - Supraventricular tachycardia [None]
